FAERS Safety Report 22005488 (Version 1)
Quarter: 2023Q1

REPORT INFORMATION
  Report Type: Spontaneous
  Country: GB (occurrence: GB)
  Receive Date: 20230217
  Receipt Date: 20230217
  Transmission Date: 20230417
  Serious: Yes (Other)
  Sender: FDA-Public Use
  Company Number: None

PATIENT
  Age: 75 Year
  Sex: Male
  Weight: 74 kg

DRUGS (16)
  1. METFORMIN [Suspect]
     Active Substance: METFORMIN HYDROCHLORIDE
     Indication: Product used for unknown indication
     Dosage: 3 DOSAGE FORM, QD (TAKE 2 WITH BREAKFAST AND ONE WITH EVENING MEAL)
     Route: 048
     Dates: start: 20221209
  2. ALLOPURINOL [Concomitant]
     Active Substance: ALLOPURINOL
     Dosage: 1 DOSAGE FORM, QD
     Route: 065
     Dates: start: 20211012
  3. ASPIRIN [Concomitant]
     Active Substance: ASPIRIN
     Dosage: 1 DOSAGE FORM, QD
     Route: 065
     Dates: start: 20140613
  4. BISOPROLOL [Concomitant]
     Active Substance: BISOPROLOL
     Dosage: 1 DOSAGE FORM, QD (AT NIGHT)
     Route: 065
     Dates: start: 20210504
  5. CIPROFLOXACIN [Concomitant]
     Active Substance: CIPROFLOXACIN
     Dosage: 1 DOSAGE FORM, BID
     Route: 065
     Dates: start: 20221221, end: 20230104
  6. HYDROCORTISONE\MICONAZOLE NITRATE [Concomitant]
     Active Substance: HYDROCORTISONE\MICONAZOLE NITRATE
     Dosage: 1 DOSAGE FORM, BID (APPLY)
     Route: 065
     Dates: start: 20221129, end: 20221209
  7. DAPAGLIFLOZIN [Concomitant]
     Active Substance: DAPAGLIFLOZIN
     Dosage: 1 DOSAGE FORM, QD
     Route: 065
     Dates: start: 20220304
  8. FERROUS FUMARATE [Concomitant]
     Active Substance: FERROUS FUMARATE
     Dosage: 1 DOSAGE FORM, QD
     Route: 065
     Dates: start: 20220216
  9. FOLIC ACID [Concomitant]
     Active Substance: FOLIC ACID
     Dosage: 1 DOSAGE FORM, QD
     Route: 065
     Dates: start: 20221112, end: 20230107
  10. INSULIN ASPART [Concomitant]
     Active Substance: INSULIN ASPART
     Dosage: UNK (USE AS DIRECTED)
     Route: 065
     Dates: start: 20201110
  11. OMEPRAZOLE [Concomitant]
     Active Substance: OMEPRAZOLE
     Dosage: 1 DOSAGE FORM, QD (IN THE MORNING)
     Route: 065
     Dates: start: 20200327
  12. PREDNISOLONE [Concomitant]
     Active Substance: PREDNISOLONE
     Dosage: 6 DOSAGE FORM, QD (THEN REDUCE BY ONE E)
     Route: 065
     Dates: start: 20221221, end: 20221228
  13. QUININE [Concomitant]
     Active Substance: QUININE
     Dosage: 1 DOSAGE FORM, QD (AT NIGHT)
     Route: 065
     Dates: start: 20200916
  14. SERTRALINE [Concomitant]
     Active Substance: SERTRALINE HYDROCHLORIDE
     Dosage: 1 DOSAGE FORM, QD (EACH MORNING)
     Route: 065
     Dates: start: 20140613
  15. SIMVASTATIN [Concomitant]
     Active Substance: SIMVASTATIN
     Dosage: 1 DOSAGE FORM, QD (AT NIGHT)
     Route: 065
     Dates: start: 20150622
  16. OLODATEROL HYDROCHLORIDE\TIOTROPIUM BROMIDE MONOHYDRATE [Concomitant]
     Active Substance: OLODATEROL HYDROCHLORIDE\TIOTROPIUM BROMIDE MONOHYDRATE
     Dosage: 2 DOSAGE FORM, QD
     Route: 065
     Dates: start: 20221011

REACTIONS (2)
  - Muscle spasms [Recovered/Resolved]
  - Gait disturbance [Recovered/Resolved]
